FAERS Safety Report 4332577-9 (Version None)
Quarter: 2004Q2

REPORT INFORMATION
  Report Type: 
  Country: None (occurrence: None)
  Receive Date: 20040401
  Receipt Date: 20040326
  Transmission Date: 20050107
  Serious: Yes (Death)
  Sender: FDA-Public Use
  Company Number: 2004201977JP

PATIENT
  Age: 47 Year
  Sex: Male

DRUGS (11)
  1. CARDIZEM [Suspect]
     Dosage: 200 MG, DAILY, ORAL
     Route: 048
     Dates: end: 20040117
  2. ALDACTONE [Suspect]
     Indication: CARDIAC FAILURE CHRONIC
     Dosage: 25 MG, DAILY, ORAL
     Route: 048
     Dates: end: 20040117
  3. BISOPROLOL FUMARATE [Suspect]
     Indication: CARDIAC FAILURE
     Dosage: 0.625 MG DAILY, ORAL : 1.25 MG, DAILY, ORAL
     Route: 048
     Dates: start: 20030327, end: 20030409
  4. BISOPROLOL FUMARATE [Suspect]
     Indication: CARDIAC FAILURE
     Dosage: 0.625 MG DAILY, ORAL : 1.25 MG, DAILY, ORAL
     Route: 048
     Dates: start: 20030410, end: 20030423
  5. BISOPROLOL/PLACEBO [Suspect]
     Indication: CARDIAC FAILURE CHRONIC
     Dosage: 1.25 MG DAILY : 5 MG, DAILY, ORAL : 2.5 MG DAILY, ORAL
     Route: 048
     Dates: start: 20030424, end: 20030507
  6. BISOPROLOL/PLACEBO [Suspect]
     Indication: CARDIAC FAILURE CHRONIC
     Dosage: 1.25 MG DAILY : 5 MG, DAILY, ORAL : 2.5 MG DAILY, ORAL
     Route: 048
     Dates: start: 20030508, end: 20030604
  7. BISOPROLOL/PLACEBO [Suspect]
     Indication: CARDIAC FAILURE CHRONIC
     Dosage: 1.25 MG DAILY : 5 MG, DAILY, ORAL : 2.5 MG DAILY, ORAL
     Route: 048
     Dates: start: 20030605, end: 20040117
  8. ACETYLSALICYLIC ACID SRT [Suspect]
     Indication: PROPHYLAXIS
     Dosage: 200 MG, DAILY, ORAL
     Route: 048
     Dates: end: 20040117
  9. FUROSEMIDE [Suspect]
     Indication: CARDIAC FAILURE CHRONIC
     Dosage: 20 MG, DAILY, ORAL
     Route: 048
     Dates: end: 20040117
  10. LOSARTAN POTASSIUM [Suspect]
     Indication: CARDIAC FAILURE CHRONIC
     Dosage: 25 MG, DAILY, ORAL
     Route: 048
     Dates: end: 20040117
  11. GENTACIN(GENTAMICIN SULFATE) [Concomitant]

REACTIONS (4)
  - CARDIO-RESPIRATORY ARREST [None]
  - FALL [None]
  - SUDDEN DEATH [None]
  - VENTRICULAR FIBRILLATION [None]
